FAERS Safety Report 9261625 (Version 2)
Quarter: 2013Q2

REPORT INFORMATION
  Report Type: Report from Study
  Country: US (occurrence: US)
  Receive Date: 20130429
  Receipt Date: 20130514
  Transmission Date: 20140414
  Serious: Yes (Death, Hospitalization)
  Sender: FDA-Public Use
  Company Number: US-ACTELION-A-US2013-82325

PATIENT
  Age: 71 Year
  Sex: Male

DRUGS (4)
  1. TRACLEER [Suspect]
     Indication: PULMONARY ARTERIAL HYPERTENSION
     Dosage: UNK
     Route: 048
     Dates: start: 2013, end: 20130411
  2. ADCIRCA [Concomitant]
  3. SPIRONOLACTONE [Concomitant]
     Dosage: UNK
  4. DIGOXIN [Concomitant]

REACTIONS (8)
  - Death [Fatal]
  - Intestinal obstruction [Unknown]
  - Insomnia [Unknown]
  - Infection [Unknown]
  - Loss of consciousness [Unknown]
  - White blood cell count increased [Unknown]
  - Decreased appetite [Unknown]
  - Dyspnoea [Unknown]
